FAERS Safety Report 16989871 (Version 1)
Quarter: 2019Q4

REPORT INFORMATION
  Report Type: Spontaneous
  Country: US (occurrence: US)
  Receive Date: 20190920
  Receipt Date: 20190920
  Transmission Date: 20200122
  Serious: No
  Sender: FDA-Public Use
  Company Number: None

PATIENT
  Age: 71 Year
  Sex: Female

DRUGS (4)
  1. FUROSEMIDE. [Concomitant]
     Active Substance: FUROSEMIDE
  2. LOSARTAN. [Concomitant]
     Active Substance: LOSARTAN
  3. CARVEDIOL [Concomitant]
     Active Substance: CARVEDILOL
  4. PIQRAY [Suspect]
     Active Substance: ALPELISIB
     Route: 048
     Dates: start: 20190711

REACTIONS (5)
  - Rash [None]
  - Nausea [None]
  - Vomiting [None]
  - Fatigue [None]
  - Hyperglycaemia [None]

NARRATIVE: CASE EVENT DATE: 20190920
